FAERS Safety Report 6976005 (Version 4)
Quarter: 2015Q2

REPORT INFORMATION
  Report Type: Report from Study
  Country: DE (occurrence: DE)
  Receive Date: 20090423
  Receipt Date: 20150415
  Transmission Date: 20150821
  Serious: Yes (Hospitalization, Disabling)
  Sender: FDA-Public Use
  Company Number: PHHO2009DE04858

PATIENT
  Age: 57 Year
  Sex: Female
  Weight: 81 kg

DRUGS (3)
  1. MYFORTIC [Suspect]
     Active Substance: MYCOPHENOLATE SODIUM
     Indication: RENAL TRANSPLANT
     Dosage: 720 MG, BID
     Route: 048
  2. URBASON [Suspect]
     Active Substance: METHYLPREDNISOLONE
     Dosage: 12 MG, QD
  3. EVEROLIMUS [Suspect]
     Active Substance: EVEROLIMUS
     Indication: RENAL TRANSPLANT
     Dosage: 0.75 MG, BID
     Route: 048
     Dates: end: 20090403

REACTIONS (3)
  - Dyspnoea [Recovered/Resolved]
  - Chest X-ray abnormal [Not Recovered/Not Resolved]
  - Alveolitis [Not Recovered/Not Resolved]

NARRATIVE: CASE EVENT DATE: 20090330
